FAERS Safety Report 7944109 (Version 4)
Quarter: 2014Q1

REPORT INFORMATION
  Report Type: Spontaneous
  Country: US (occurrence: US)
  Receive Date: 20110513
  Receipt Date: 20140108
  Transmission Date: 20141002
  Serious: Yes (Hospitalization, Other)
  Sender: FDA-Public Use
  Company Number: US-BAYER-2011-040442

PATIENT
  Age: 24 Year
  Sex: Female
  Weight: 63 kg

DRUGS (7)
  1. YAZ [Suspect]
     Dosage: UNK
     Route: 048
     Dates: start: 2005, end: 201002
  2. OCELLA [Suspect]
     Dosage: UNK
     Route: 048
     Dates: start: 2005, end: 201002
  3. YASMIN [Suspect]
     Dosage: UNK
     Dates: start: 2005, end: 201002
  4. AMOXICILLIN [Concomitant]
     Dosage: UNK UNK, PRN
     Route: 048
     Dates: start: 1984
  5. IBUPROFEN [Concomitant]
     Dosage: UNK UNK, PRN
     Route: 048
     Dates: start: 1984
  6. OXYCODONE/APAP [Concomitant]
     Dosage: UNK
     Route: 048
     Dates: start: 20080425
  7. HYDROCODONE W/APAP [Concomitant]
     Dosage: UNK
     Route: 048
     Dates: start: 20080422

REACTIONS (10)
  - Gallbladder disorder [None]
  - Cholecystitis chronic [None]
  - Pancreatitis [None]
  - Pulmonary embolism [None]
  - Deep vein thrombosis [None]
  - Myocardial infarction [None]
  - Cerebrovascular accident [None]
  - Mental disorder [None]
  - Pain [None]
  - Injury [None]
